FAERS Safety Report 22680615 (Version 7)
Quarter: 2023Q4

REPORT INFORMATION
  Report Type: Report from Study
  Country: US (occurrence: US)
  Receive Date: 20230707
  Receipt Date: 20231129
  Transmission Date: 20240110
  Serious: Yes (Hospitalization, Other)
  Sender: FDA-Public Use
  Company Number: US-ACADIA PHARMACEUTICALS INC.-ACA-2023-TRF-002406

PATIENT
  Age: 13 Year
  Sex: Female

DRUGS (45)
  1. DAYBUE [Suspect]
     Active Substance: TROFINETIDE
     Indication: Rett syndrome
     Dosage: 10 MILLILITER, BID VIA G TUBE
     Dates: start: 20230528
  2. DAYBUE [Suspect]
     Active Substance: TROFINETIDE
     Dosage: 20 MILLILITER, BID VIA G TUBE
     Dates: start: 20230528
  3. DAYBUE [Suspect]
     Active Substance: TROFINETIDE
     Dosage: 30 MILLILITER, BID VIA G TUBE
  4. DAYBUE [Suspect]
     Active Substance: TROFINETIDE
     Dosage: 25 MILLILITER, BID VIA G TUBE
     Dates: end: 20231014
  5. DAYBUE [Suspect]
     Active Substance: TROFINETIDE
     Dosage: 25 MILLILITER, BID VIA G TUBE
     Dates: end: 20231026
  6. AUGMENTIN [Suspect]
     Active Substance: AMOXICILLIN\CLAVULANATE POTASSIUM
     Indication: Impaired gastric emptying
     Dosage: UNK
     Dates: start: 20231009
  7. MAPAP [Concomitant]
     Active Substance: ACETAMINOPHEN
     Indication: Pyrexia
     Dosage: 15 MILLILITER, EVERY 4 HOURS AS NEEDED
  8. MAPAP [Concomitant]
     Active Substance: ACETAMINOPHEN
     Indication: Pain
     Dosage: 160 MG/MLUNK
  9. ACETAMINOPHEN [Concomitant]
     Active Substance: ACETAMINOPHEN
     Indication: Pain
     Dosage: 16 MILLILITER EVERY 4 HOURS AS NEEDED
  10. ACETAMINOPHEN [Concomitant]
     Active Substance: ACETAMINOPHEN
     Indication: Agitation
     Dosage: 160MG/5ML SOLUTION
  11. TYLENOL [Concomitant]
     Active Substance: ACETAMINOPHEN
     Indication: Pain
     Dosage: TAKE 15.63 ML (500 MG TOTAL) BY MOUTH EVERY 4 (FOUR) HOURS AS NEEDED
  12. TYLENOL [Concomitant]
     Active Substance: ACETAMINOPHEN
     Indication: Agitation
  13. PROVENTIL HFA [Concomitant]
     Active Substance: ALBUTEROL SULFATE
     Indication: Wheezing
     Dosage: 90 MICROGRAM, INHALE 2 PUFFS EVERY 4 (FOUR) HOURS AS NEEDED
  14. PROVENTIL HFA [Concomitant]
     Active Substance: ALBUTEROL SULFATE
     Indication: Dyspnoea
  15. DULCOLAX (BISACODYL) [Concomitant]
     Active Substance: BISACODYL
     Indication: Constipation
     Dosage: 10 MILLIGRAM, ONE SUPPOSITORY EVERY 3 DAY WHEN VERY CONSTIPATED
     Route: 054
  16. CBD CANNABIDIOL HANFOEL EXTRAKT [Concomitant]
     Dosage: TAKE BY MOUTH
  17. CELEXA [Concomitant]
     Active Substance: CITALOPRAM HYDROBROMIDE
     Dosage: 10MG/5 MILLILITER, QD
  18. CATAPRES [Concomitant]
     Active Substance: CLONIDINE HYDROCHLORIDE
     Dosage: 0.1 MG TABLET AT BEDTIME
  19. VALTOCO [Concomitant]
     Active Substance: DIAZEPAM
     Indication: Seizure
     Dosage: 10 MILLIGRAM/ SPRAY (0.1 ML), ADMINISTER ONE SPRAY INTO AFFECTED NOSTRIL ONCE DAILY AS NEEDED
  20. NEXIUM [Concomitant]
     Active Substance: ESOMEPRAZOLE MAGNESIUM
     Dosage: 40 MILLIGRAM, QD GRANULES DR FOR SUSP IN PACKET
     Route: 048
  21. SODIUM FLUORIDE [Concomitant]
     Active Substance: SODIUM FLUORIDE\SODIUM MONOFLUOROPHOSPHATE
     Dosage: 0.5 ML (0.25 MG TOTAL) DAILY
  22. SODIUM FLUORIDE [Concomitant]
     Active Substance: SODIUM FLUORIDE\SODIUM MONOFLUOROPHOSPHATE
     Dosage: 0.5MG (1.1 MG SODIUM.FLUORIDE)/ML
  23. FLONASE [Concomitant]
     Active Substance: FLUTICASONE PROPIONATE
     Dosage: 50 MICROGRAM, TWO SPRAYS IN THE AFFECTED NOSTRIL EVERY EVENING
     Route: 045
  24. HYDROCORTISONE [Concomitant]
     Active Substance: HYDROCORTISONE
     Dosage: 1 PERCENT, APPLY 1 APPLICATION TOPICALLY 2 (TWO) IMES A DAY AS NEEDED
  25. MOTRIN [Concomitant]
     Active Substance: IBUPROFEN
     Indication: Pain
     Dosage: 100MG/5 MILLILITER, EVERY 6 HOURS AS NEEDED
     Route: 048
  26. LAMICTAL [Concomitant]
     Active Substance: LAMOTRIGINE
     Dosage: 25 MILLIGRAM,7 TABLET BID
  27. CHILDREN^S LORATADINE [Concomitant]
     Dosage: 10 MILLILITER, QD
  28. ATIVAN [Concomitant]
     Active Substance: LORAZEPAM
     Dosage: 0.5 ML EVERY 6 HOURS AS NEEDED
  29. MENTHOL;ZINC OXIDE [Concomitant]
     Dosage: .44-20.6 PERCENT, ONE APPLICATION 2 TIMES DAILY TO G TUBE SITE ON ABDOMEN
     Route: 061
  30. SINGULAIR [Concomitant]
     Active Substance: MONTELUKAST SODIUM
     Route: 048
  31. FLINTSTONES WITH EXTRA C [Concomitant]
     Dosage: CRUSH AND PUT IN APPLESAUCE DAILY
  32. PEDIASURE FIBRE [Concomitant]
     Dosage: 237 MILLILITER, QD
  33. SIMETHICONE (DIMETHICONE) [Concomitant]
     Active Substance: DIMETHICONE
  34. SIMETHICONE (DIMETHICONE) [Concomitant]
     Active Substance: DIMETHICONE
     Dosage: 40MG/0.6 ML BY MOUTH FOUR TIMES DAILY AS NEEDED
  35. SODIUM CHLORIDE [Concomitant]
     Active Substance: SODIUM CHLORIDE
     Indication: Nasal congestion
     Dosage: 0.65 PERCENT, INHALE ONE SPRAY INTO EACH NOSTRIL EVERY DAY AS NEEDED
  36. SODIUM CHLORIDE [Concomitant]
     Active Substance: SODIUM CHLORIDE
     Indication: Rhinitis
  37. ALBUTEROL SULFATE [Concomitant]
     Active Substance: ALBUTEROL SULFATE
  38. DOCONEXENT\ICOSAPENT [Concomitant]
     Active Substance: DOCONEXENT\ICOSAPENT
  39. NEXIUM I.V. [Concomitant]
     Active Substance: ESOMEPRAZOLE SODIUM
     Dosage: 40 MILLIGRAM PACKET
  40. LORAZEPAM [Concomitant]
     Active Substance: LORAZEPAM
  41. FLINTSTONES [Concomitant]
     Dosage: GUMMIES
  42. LORAZEPAM INTENSOL [Concomitant]
     Active Substance: LORAZEPAM
     Dosage: 2MG/ML
  43. VENTOLIN HFA [Concomitant]
     Active Substance: ALBUTEROL SULFATE
     Dosage: 90 MCG
  44. CHILDRENS TYLENOL [Concomitant]
     Active Substance: ACETAMINOPHEN
     Dosage: 160 MG/5 ML
  45. CHILDREN^S ALLERGY RELIEF, LOR [Concomitant]
     Dosage: 5 MG/5 ML

REACTIONS (13)
  - Impaired gastric emptying [Not Recovered/Not Resolved]
  - Diarrhoea [Recovered/Resolved]
  - Weight decreased [Recovered/Resolved]
  - Dehydration [Unknown]
  - Nausea [Not Recovered/Not Resolved]
  - Retching [Not Recovered/Not Resolved]
  - Decreased appetite [Not Recovered/Not Resolved]
  - Underdose [Not Recovered/Not Resolved]
  - Weight decreased [Not Recovered/Not Resolved]
  - Constipation [Recovered/Resolved]
  - Diarrhoea [Recovered/Resolved]
  - Diarrhoea [Not Recovered/Not Resolved]
  - Vomiting [Recovered/Resolved]

NARRATIVE: CASE EVENT DATE: 20230528
